FAERS Safety Report 6260946-9 (Version None)
Quarter: 2009Q3

REPORT INFORMATION
  Report Type: 
  Country: None (occurrence: None)
  Receive Date: 20090707
  Receipt Date: 20090622
  Transmission Date: 20100115
  Serious: Yes (Hospitalization)
  Sender: FDA-Public Use
  Company Number: A-NJ2009-26138

PATIENT
  Age: 52 Year
  Weight: 45.1 kg

DRUGS (5)
  1. TRACLEER [Suspect]
     Indication: PULMONARY ARTERIAL HYPERTENSION
     Dosage: 125 MG, BID, ORAL, 62.5 MG, BID, ORAL
     Route: 048
     Dates: start: 20070405, end: 20070719
  2. TRACLEER [Suspect]
     Indication: PULMONARY ARTERIAL HYPERTENSION
     Dosage: 125 MG, BID, ORAL, 62.5 MG, BID, ORAL
     Route: 048
     Dates: start: 20070720, end: 20090325
  3. SILDENAFIL CITRATE [Concomitant]
  4. WARFARIN SODIUM [Concomitant]
  5. DIURETICS [Concomitant]

REACTIONS (1)
  - LIVER FUNCTION TEST ABNORMAL [None]
